FAERS Safety Report 9918925 (Version 1)
Quarter: 2014Q1

REPORT INFORMATION
  Report Type: Spontaneous
  Country: US (occurrence: US)
  Receive Date: 20140224
  Receipt Date: 20140224
  Transmission Date: 20141002
  Serious: No
  Sender: FDA-Public Use
  Company Number: US-PFIZER INC-2014047559

PATIENT
  Sex: Male

DRUGS (2)
  1. VIAGRA [Suspect]
     Dosage: UNK
     Route: 048
  2. VIAGRA [Suspect]
     Dosage: 100 MG (TWO 100 MG TABLETS IN A GAP OF 6 HOURS ), 2X/DAY
     Route: 048

REACTIONS (2)
  - Intentional drug misuse [Unknown]
  - Drug ineffective [Unknown]
